FAERS Safety Report 15627425 (Version 1)
Quarter: 2018Q4

REPORT INFORMATION
  Report Type: Spontaneous
  Country: US (occurrence: US)
  Receive Date: 20181116
  Receipt Date: 20181116
  Transmission Date: 20190205
  Serious: No
  Sender: FDA-Public Use
  Company Number: US-MYLANLABS-2018M1082509

PATIENT
  Sex: Male
  Weight: 77 kg

DRUGS (4)
  1. ALLOPURINOL. [Suspect]
     Active Substance: ALLOPURINOL
     Dosage: 100 MG, UNK
     Route: 048
  2. ALLOPURINOL. [Suspect]
     Active Substance: ALLOPURINOL
     Indication: BLOOD URIC ACID
     Dosage: UNK
     Route: 048
  3. ATORVASTATIN CALCIUM TABLETS [Suspect]
     Active Substance: ATORVASTATIN CALCIUM
     Indication: SURGERY
     Dosage: UNK
     Route: 048
  4. ALFUZOSIN [Concomitant]
     Active Substance: ALFUZOSIN
     Indication: PRODUCT USED FOR UNKNOWN INDICATION
     Dosage: UNK

REACTIONS (5)
  - Feeling abnormal [Not Recovered/Not Resolved]
  - Balance disorder [Not Recovered/Not Resolved]
  - Muscle spasms [Not Recovered/Not Resolved]
  - Dizziness [Not Recovered/Not Resolved]
  - Confusional state [Not Recovered/Not Resolved]
